FAERS Safety Report 19449247 (Version 2)
Quarter: 2021Q3

REPORT INFORMATION
  Report Type: Spontaneous
  Country: US (occurrence: US)
  Receive Date: 20210622
  Receipt Date: 20210907
  Transmission Date: 20211014
  Serious: No
  Sender: FDA-Public Use
  Company Number: US-PFIZER INC-2021282891

PATIENT
  Age: 85 Year

DRUGS (1)
  1. DETROL LA [Suspect]
     Active Substance: TOLTERODINE TARTRATE
     Dosage: UNK

REACTIONS (5)
  - Tremor [Unknown]
  - Impaired driving ability [Unknown]
  - Fibromyalgia [Unknown]
  - Illness [Unknown]
  - Fall [Unknown]
